FAERS Safety Report 19421421 (Version 1)
Quarter: 2021Q2

REPORT INFORMATION
  Report Type: Spontaneous
  Country: US (occurrence: US)
  Receive Date: 20210616
  Receipt Date: 20210616
  Transmission Date: 20210717
  Serious: No
  Sender: FDA-Public Use
  Company Number: US-ORGANON-O2106USA001047

PATIENT
  Age: 64 Year
  Sex: Female

DRUGS (3)
  1. ASMANEX [Suspect]
     Active Substance: MOMETASONE FUROATE
     Indication: ASTHMA
     Dosage: (60 DOSE) ORAL INHALATION
     Dates: start: 202104
  2. MUCINEX [Concomitant]
     Active Substance: GUAIFENESIN
  3. CLARITINE [Concomitant]
     Active Substance: LORATADINE

REACTIONS (4)
  - Poor quality device used [Not Recovered/Not Resolved]
  - Wheezing [Not Recovered/Not Resolved]
  - Device malfunction [Not Recovered/Not Resolved]
  - Cough [Not Recovered/Not Resolved]

NARRATIVE: CASE EVENT DATE: 202105
